FAERS Safety Report 10302252 (Version 1)
Quarter: 2014Q3

REPORT INFORMATION
  Report Type: Spontaneous
  Country: US (occurrence: None)
  Receive Date: 20140710
  Receipt Date: 20140710
  Transmission Date: 20150326
  Serious: Yes (Life-Threatening, Hospitalization, Disabling, Other)
  Sender: FDA-Public Use
  Company Number: None

PATIENT
  Age: 48 Year
  Sex: Female
  Weight: 49.9 kg

DRUGS (28)
  1. TRUVADA [Concomitant]
     Active Substance: EMTRICITABINE\TENOFOVIR DISOPROXIL FUMARATE
  2. ALPRAZOLAM. [Concomitant]
     Active Substance: ALPRAZOLAM
  3. TOPAMAX [Concomitant]
     Active Substance: TOPIRAMATE
  4. NYSTOP [Concomitant]
     Active Substance: NYSTATIN
  5. PREZISTA [Concomitant]
     Active Substance: DARUNAVIR ETHANOLATE
  6. OMEPRAZOLE. [Concomitant]
     Active Substance: OMEPRAZOLE
  7. BENZTROPINE MESYLATE. [Concomitant]
     Active Substance: BENZTROPINE MESYLATE
  8. ATIVAN [Suspect]
     Active Substance: LORAZEPAM
     Indication: BIPOLAR DISORDER
     Dosage: 0.5 MG, 2 PILLS A DAY, TWICE YES, BY MOUTH
     Route: 048
  9. DOSENAX [Concomitant]
  10. ATIVAN [Suspect]
     Active Substance: LORAZEPAM
     Indication: CEREBRAL PALSY
     Dosage: 0.5 MG, 2 PILLS A DAY, TWICE YES, BY MOUTH
     Route: 048
  11. PROLIXIN [Concomitant]
     Active Substance: FLUPHENAZINE HYDROCHLORIDE
  12. OLANZAPINE ZYPREXA [Concomitant]
  13. TOPAMATE [Concomitant]
  14. ISENTRESS [Concomitant]
     Active Substance: RALTEGRAVIR POTASSIUM
  15. ATIVAN [Suspect]
     Active Substance: LORAZEPAM
     Indication: AFFECTIVE DISORDER
     Dosage: 0.5 MG, 2 PILLS A DAY, TWICE YES, BY MOUTH
     Route: 048
  16. SIMVASTATIN. [Concomitant]
     Active Substance: SIMVASTATIN
  17. ACYCLOVIR. [Concomitant]
     Active Substance: ACYCLOVIR
  18. FLUPHENAZINE [Concomitant]
     Active Substance: FLUPHENAZINE
  19. ATIVAN [Suspect]
     Active Substance: LORAZEPAM
     Indication: POST-TRAUMATIC STRESS DISORDER
     Dosage: 0.5 MG, 2 PILLS A DAY, TWICE YES, BY MOUTH
     Route: 048
  20. ATIVAN [Suspect]
     Active Substance: LORAZEPAM
     Indication: PARANOIA
     Dosage: 0.5 MG, 2 PILLS A DAY, TWICE YES, BY MOUTH
     Route: 048
  21. ATIVAN [Suspect]
     Active Substance: LORAZEPAM
     Indication: ANXIETY
     Dosage: 0.5 MG, 2 PILLS A DAY, TWICE YES, BY MOUTH
     Route: 048
  22. COQENTIN [Concomitant]
  23. ATIVAN [Suspect]
     Active Substance: LORAZEPAM
     Indication: SCHIZOPHRENIA
     Dosage: 0.5 MG, 2 PILLS A DAY, TWICE YES, BY MOUTH
     Route: 048
  24. BENZTROPHINE MEAYLATE ORAZEPAM [Concomitant]
  25. BENZTROPINE TAB [Concomitant]
  26. LORAZEPAM. [Concomitant]
     Active Substance: LORAZEPAM
  27. FLUPHENAZINE [Concomitant]
     Active Substance: FLUPHENAZINE
  28. NORVIR [Concomitant]
     Active Substance: RITONAVIR

REACTIONS (10)
  - Drug dependence [None]
  - Aggression [None]
  - Physical assault [None]
  - Suicidal ideation [None]
  - Abnormal behaviour [None]
  - Therapy cessation [None]
  - Homicidal ideation [None]
  - General physical health deterioration [None]
  - Anger [None]
  - Drug interaction [None]

NARRATIVE: CASE EVENT DATE: 20140618
